FAERS Safety Report 9118280 (Version 1)
Quarter: 2013Q1

REPORT INFORMATION
  Report Type: Spontaneous
  Country: US (occurrence: US)
  Receive Date: 20130125
  Receipt Date: 20130125
  Transmission Date: 20140127
  Serious: No
  Sender: FDA-Public Use
  Company Number: US-RB-044230-12

PATIENT
  Sex: Male
  Weight: 104.2 kg

DRUGS (25)
  1. SUBOXONE FILM [Suspect]
     Indication: PAIN MANAGEMENT
     Dosage: SUBOXONE FILM
     Route: 060
     Dates: start: 20100202, end: 20110728
  2. ELAVIL [Concomitant]
     Indication: PRODUCT USED FOR UNKNOWN INDICATION
     Dosage: 50 MG AT BED TIME
     Route: 065
  3. COLACE [Concomitant]
     Indication: PRODUCT USED FOR UNKNOWN INDICATION
     Route: 048
  4. GABAPENTIN [Concomitant]
     Indication: PRODUCT USED FOR UNKNOWN INDICATION
     Route: 048
     Dates: end: 20100322
  5. GABAPENTIN [Concomitant]
     Route: 048
     Dates: start: 20100322, end: 20100505
  6. MOBIC [Concomitant]
     Indication: PRODUCT USED FOR UNKNOWN INDICATION
     Route: 048
  7. NEURONTIN [Concomitant]
     Indication: PRODUCT USED FOR UNKNOWN INDICATION
     Dosage: 800 MG THREE TIMES DAILY AND ONE AS NEEDED
     Route: 048
     Dates: start: 20100505
  8. NEURONTIN [Concomitant]
     Route: 065
  9. NEURONTIN [Concomitant]
     Route: 065
  10. NEURONTIN [Concomitant]
     Route: 065
     Dates: start: 20110628
  11. CYMBALTA [Concomitant]
     Indication: PRODUCT USED FOR UNKNOWN INDICATION
     Route: 065
     Dates: start: 20100322
  12. ZANAFLEX [Concomitant]
     Indication: PRODUCT USED FOR UNKNOWN INDICATION
     Dosage: 3 PILLS HS PAIN AND SLEEP
     Route: 048
     Dates: start: 20100322
  13. ZANAFLEX [Concomitant]
     Route: 065
  14. ZANAFLEX [Concomitant]
     Dosage: ^4 MG TAKES TWO POT ID^
     Route: 065
     Dates: start: 20110308
  15. ZANAFLEX [Concomitant]
     Dosage: ^1 TWICE DAILY AND 3-4 AT BED TIME^
     Route: 048
     Dates: end: 20110531
  16. ZANAFLEX [Concomitant]
     Route: 065
     Dates: start: 20100531
  17. ZANAFLEX [Concomitant]
     Route: 065
  18. ABILIFY [Concomitant]
     Indication: PRODUCT USED FOR UNKNOWN INDICATION
     Dosage: ADDED TO THE CYMBALTA
     Route: 065
     Dates: start: 20100505
  19. STOOL SOFTENER [Concomitant]
     Indication: PRODUCT USED FOR UNKNOWN INDICATION
     Route: 065
  20. EXCEDRIN ES [Concomitant]
     Indication: PRODUCT USED FOR UNKNOWN INDICATION
     Dosage: TWO IN AM 250 MG - TAKES 5/DAY-1250 MG/DAY
     Route: 065
  21. VITAMINS [Concomitant]
     Indication: PRODUCT USED FOR UNKNOWN INDICATION
     Dosage: DAILY
     Route: 065
  22. LISINOPRIL [Concomitant]
     Route: 065
     Dates: start: 20110504
  23. LISINOPRIL [Concomitant]
     Route: 065
     Dates: end: 20110628
  24. LISINOPRIL [Concomitant]
     Indication: PRODUCT USED FOR UNKNOWN INDICATION
     Route: 065
     Dates: start: 20110628
  25. HYDROCHLOROTHIAZIDE [Concomitant]
     Indication: PRODUCT USED FOR UNKNOWN INDICATION
     Route: 065
     Dates: start: 20110531

REACTIONS (7)
  - Pain [Not Recovered/Not Resolved]
  - Dyspepsia [Unknown]
  - Anxiety [Recovered/Resolved]
  - Anger [Recovered/Resolved]
  - Intervertebral disc protrusion [Unknown]
  - Hypoaesthesia [Unknown]
  - Tooth disorder [Unknown]
